FAERS Safety Report 22861475 (Version 2)
Quarter: 2025Q1

REPORT INFORMATION
  Report Type: Report from Study
  Country: CN (occurrence: CN)
  Receive Date: 20230824
  Receipt Date: 20250305
  Transmission Date: 20250409
  Serious: Yes (Other)
  Sender: AUROBINDO
  Company Number: CN-AUROBINDO-AUR-APL-2023-054917

PATIENT
  Age: 56 Year
  Sex: Male
  Weight: 57 kg

DRUGS (2)
  1. EVOMELA [Suspect]
     Active Substance: MELPHALAN HYDROCHLORIDE
     Indication: POEMS syndrome
     Route: 042
  2. EVOMELA [Suspect]
     Active Substance: MELPHALAN HYDROCHLORIDE
     Indication: Autologous haematopoietic stem cell transplant

REACTIONS (9)
  - Agranulocytosis [Unknown]
  - Gastrointestinal disorder [Recovered/Resolved]
  - Platelet count decreased [Unknown]
  - Anaemia [Unknown]
  - Nausea [Unknown]
  - Decreased appetite [Unknown]
  - Pyrexia [Unknown]
  - Abdominal discomfort [Unknown]
  - Off label use [Unknown]
